FAERS Safety Report 9456852 (Version 1)
Quarter: 2013Q3

REPORT INFORMATION
  Report Type: Spontaneous
  Country: US (occurrence: US)
  Receive Date: 20130813
  Receipt Date: 20130813
  Transmission Date: 20140515
  Serious: No
  Sender: FDA-Public Use
  Company Number: US-009507513-1307USA007593

PATIENT
  Age: 40 Year
  Sex: Female

DRUGS (22)
  1. REBETOL [Suspect]
     Dosage: 800 MG, QD
     Route: 048
     Dates: start: 20040813, end: 20041003
  2. REBETOL [Suspect]
     Dosage: 800 MG, QD
     Route: 048
     Dates: start: 20041118, end: 20041230
  3. PEGINTERFERON ALFA-2B [Suspect]
     Dosage: 120 MICROGRAM, QW
     Route: 065
     Dates: start: 20040813, end: 20041003
  4. PEGINTERFERON ALFA-2B [Suspect]
     Dosage: 120 MICROGRAM, QW
     Route: 065
     Dates: start: 20041118, end: 20041230
  5. FOLIC ACID [Suspect]
     Indication: PREGNANCY
     Dosage: 0.8 MG, UNK
  6. TYLENOL [Suspect]
     Indication: PAIN
     Dosage: UNK
  7. AMBIEN [Suspect]
     Indication: PAIN
     Dosage: UNK
     Dates: end: 20050107
  8. DALMANE [Suspect]
     Indication: PAIN
     Dosage: 15 MG, UNK
     Dates: end: 20050107
  9. PROZAC [Suspect]
     Indication: PAIN
     Dosage: 60 MG, UNK
     Dates: end: 20050107
  10. TRAZODONE HYDROCHLORIDE [Suspect]
     Indication: PAIN
     Dosage: 100 MG, UNK
     Dates: end: 20050107
  11. SOMA [Suspect]
     Indication: PAIN
     Dosage: 350 MG, UNK
     Dates: end: 20041215
  12. MUCINEX [Suspect]
     Indication: COUGH
     Dosage: 600 MG, UNK
     Dates: start: 200503, end: 20050501
  13. BENADRYL [Suspect]
     Indication: INSOMNIA
     Dosage: UNK
  14. SYNTHROID [Concomitant]
     Indication: HYPOTHYROIDISM
     Dosage: 0.25 MG, UNK
  15. KEFLEX [Suspect]
     Indication: UPPER RESPIRATORY TRACT INFECTION
     Dosage: UNK
     Dates: start: 20050114, end: 20050121
  16. RHINOCORT (BECLOMETHASONE DIPROPIONATE) [Suspect]
     Indication: RHINITIS
     Dosage: UNK
     Dates: start: 20050408
  17. MACROBID (CLARITHROMYCIN) [Suspect]
     Indication: DYSURIA
     Dosage: UNK
     Dates: start: 20050425, end: 20050502
  18. BENADRYL [Suspect]
     Indication: ALLERGY TO ARTHROPOD BITE
     Dosage: 50 MG, UNK
     Dates: start: 20050531
  19. MEDROL DOSEPAK [Suspect]
     Indication: ALLERGY TO ARTHROPOD BITE
     Dosage: UNK
     Dates: start: 20050531
  20. CIPROFLOXACIN [Suspect]
     Dosage: 1000MG, UNK
     Dates: start: 20050606
  21. OXYCODONE [Suspect]
     Indication: PAIN
     Dosage: 5 MG, UNK
     Dates: start: 20050606
  22. DAPSONE [Suspect]
     Dosage: UNK
     Dates: start: 20050610

REACTIONS (12)
  - Depression [Unknown]
  - Exposure during pregnancy [Recovered/Resolved]
  - Allergy to arthropod bite [Unknown]
  - Drug dependence [Unknown]
  - Asthma [Unknown]
  - Bipolar disorder [Unknown]
  - Intervertebral disc protrusion [Unknown]
  - Hypothyroidism [Unknown]
  - Insomnia [Unknown]
  - Rhinitis [Unknown]
  - Urinary tract infection [Unknown]
  - Oedema [Unknown]
